FAERS Safety Report 5036889-5 (Version None)
Quarter: 2006Q2

REPORT INFORMATION
  Report Type: 
  Country: None (occurrence: None)
  Receive Date: 20060628
  Receipt Date: 20060503
  Transmission Date: 20061013
  Serious: Yes (Death, Life-Threatening, Hospitalization)
  Sender: FDA-Public Use
  Company Number: 2006UW08847

PATIENT
  Age: 93 Year
  Sex: Male

DRUGS (1)
  1. DIPRIVAN [Suspect]
     Route: 042

REACTIONS (2)
  - BRAIN DEATH [None]
  - VENTRICULAR FIBRILLATION [None]
